FAERS Safety Report 21637308 (Version 2)
Quarter: 2023Q2

REPORT INFORMATION
  Report Type: Report from Study
  Country: US (occurrence: US)
  Receive Date: 20221124
  Receipt Date: 20230424
  Transmission Date: 20230722
  Serious: Yes (Other)
  Sender: FDA-Public Use
  Company Number: US-ABBVIE-4212262

PATIENT
  Sex: Female

DRUGS (1)
  1. HUMIRA [Suspect]
     Active Substance: ADALIMUMAB
     Indication: Rheumatoid arthritis
     Dosage: CITRATE FREE
     Route: 058
     Dates: start: 20220301

REACTIONS (4)
  - Knee arthroplasty [Not Recovered/Not Resolved]
  - Back pain [Recovering/Resolving]
  - Arthropathy [Not Recovered/Not Resolved]
  - Arthralgia [Recovering/Resolving]
